FAERS Safety Report 12539837 (Version 1)
Quarter: 2016Q3

REPORT INFORMATION
  Report Type: Spontaneous
  Country: US (occurrence: None)
  Receive Date: 20160707
  Receipt Date: 20160707
  Transmission Date: 20161109
  Serious: Yes (Life-Threatening, Hospitalization)
  Sender: FDA-Public Use
  Company Number: None

PATIENT
  Age: 40 Year
  Sex: Female
  Weight: 77.47 kg

DRUGS (1)
  1. LISINOPRIL. [Suspect]
     Active Substance: LISINOPRIL
     Indication: HYPERTENSION
     Dosage: 5 MG 1 30  1 A DAY MOUTH
     Route: 048
     Dates: start: 20140903, end: 20150526

REACTIONS (5)
  - Headache [None]
  - Swelling [None]
  - Dyspnoea [None]
  - Local swelling [None]
  - Swollen tongue [None]

NARRATIVE: CASE EVENT DATE: 20150526
